FAERS Safety Report 8239839-3 (Version None)
Quarter: 2012Q1

REPORT INFORMATION
  Report Type: 
  Country: None (occurrence: None)
  Receive Date: 20120328
  Receipt Date: 20120322
  Transmission Date: 20120608
  Serious: Yes (Other)
  Sender: FDA-Public Use
  Company Number: PHEH2012US006467

PATIENT
  Sex: Female

DRUGS (3)
  1. TRILEPTAL [Suspect]
     Dosage: 150 MG, QD
     Route: 048
     Dates: start: 20020101
  2. MULTI-VITAMINS [Concomitant]
     Dosage: UNK UKN, UNK
  3. ZYPREXA [Concomitant]
     Dosage: 20 MG, QD (1X PER DAY)

REACTIONS (1)
  - KIDNEY INFECTION [None]
